FAERS Safety Report 10084126 (Version 2)
Quarter: 2014Q2

REPORT INFORMATION
  Report Type: Spontaneous
  Country: US (occurrence: US)
  Receive Date: 20140417
  Receipt Date: 20140428
  Transmission Date: 20141212
  Serious: Yes (Hospitalization)
  Sender: FDA-Public Use
  Company Number: US-JNJFOC-20140408600

PATIENT
  Age: 76 Year
  Sex: Male
  Weight: 106.6 kg

DRUGS (8)
  1. XARELTO [Suspect]
     Indication: CEREBROVASCULAR ACCIDENT PROPHYLAXIS
     Route: 048
     Dates: start: 201401, end: 20140308
  2. XARELTO [Suspect]
     Indication: ATRIAL FIBRILLATION
     Route: 048
     Dates: start: 201401, end: 20140308
  3. DOXYCYCLINE [Concomitant]
     Indication: ROSACEA
     Route: 048
  4. RAMIPRIL [Concomitant]
     Indication: BLOOD PRESSURE
     Route: 048
     Dates: end: 20140324
  5. DILTIAZEM [Concomitant]
     Indication: BLOOD PRESSURE
     Route: 048
     Dates: start: 2012
  6. WELCHOL [Concomitant]
     Indication: BLOOD CHOLESTEROL
     Route: 048
     Dates: start: 201308
  7. COENZYME Q10 [Concomitant]
     Route: 065
  8. MULTIVITAMINS [Concomitant]
     Route: 065

REACTIONS (4)
  - Gingival bleeding [Recovered/Resolved]
  - Anal haemorrhage [Recovered/Resolved]
  - Haematocrit decreased [Recovered/Resolved]
  - Blood pressure decreased [Recovered/Resolved]
